FAERS Safety Report 10664097 (Version 1)
Quarter: 2014Q4

REPORT INFORMATION
  Report Type: Report from Study
  Country: US (occurrence: US)
  Receive Date: 20141219
  Receipt Date: 20141219
  Transmission Date: 20150529
  Serious: Yes (Other)
  Sender: FDA-Public Use
  Company Number: PHEH2014US024485

PATIENT
  Sex: Female

DRUGS (1)
  1. GILENYA [Suspect]
     Active Substance: FINGOLIMOD HYDROCHLORIDE
     Indication: MULTIPLE SCLEROSIS
     Dosage: 0.5 MG, QD
     Route: 048
     Dates: start: 201211

REACTIONS (8)
  - Headache [Unknown]
  - Fall [Unknown]
  - Gait disturbance [Unknown]
  - Plantar fasciitis [Unknown]
  - Neurological symptom [Unknown]
  - Migraine [Unknown]
  - Vertigo [Unknown]
  - Obesity [Unknown]
